FAERS Safety Report 4365807-8 (Version None)
Quarter: 2004Q2

REPORT INFORMATION
  Report Type: 
  Country: None (occurrence: None)
  Receive Date: 20040521
  Receipt Date: 20040511
  Transmission Date: 20050107
  Serious: Yes (Other)
  Sender: FDA-Public Use
  Company Number: 2004213537JP

PATIENT
  Age: 79 Year
  Sex: Male

DRUGS (1)
  1. SOLU-MEDROL [Suspect]
     Dosage: 1000 MG, QD, IV
     Route: 042
     Dates: start: 20040430, end: 20040430

REACTIONS (1)
  - SHOCK [None]
